FAERS Safety Report 7199992-X (Version None)
Quarter: 2010Q4

REPORT INFORMATION
  Report Type: 
  Country: None (occurrence: None)
  Receive Date: 20101228
  Receipt Date: 20101021
  Transmission Date: 20110411
  Serious: No
  Sender: FDA-Public Use
  Company Number: US-MYLANLABS-2010S1019593

PATIENT
  Age: 44 Year
  Sex: Female
  Weight: 74.84 kg

DRUGS (3)
  1. TOPIRAMATE [Suspect]
     Indication: TREMOR
     Route: 048
     Dates: start: 20100903, end: 20100901
  2. METOPROLOL TARTRATE [Concomitant]
     Indication: BLOOD PRESSURE INCREASED
     Dates: start: 20020101
  3. AVALIDE [Concomitant]
     Indication: BLOOD PRESSURE INCREASED
     Dosage: 300MG/12.5MG
     Dates: start: 20020101

REACTIONS (4)
  - FATIGUE [None]
  - HEADACHE [None]
  - NECK PAIN [None]
  - PARAESTHESIA [None]
